FAERS Safety Report 4978058-0 (Version None)
Quarter: 2006Q2

REPORT INFORMATION
  Report Type: 
  Country: None (occurrence: None)
  Receive Date: 20060414
  Receipt Date: 20060406
  Transmission Date: 20061013
  Serious: Yes (Death, Other)
  Sender: FDA-Public Use
  Company Number: 2006-04-0450

PATIENT
  Age: 71 Year
  Sex: Male

DRUGS (6)
  1. CELESTONE [Suspect]
  2. PREDONINE IV BAG [Suspect]
     Indication: FACIAL PALSY
     Dosage: 200 MD QD INTRAVENOUS; 100 MG QD INTRAVENOUS
     Route: 042
     Dates: start: 20030625, end: 20030627
  3. PREDONINE IV BAG [Suspect]
     Indication: FACIAL PALSY
     Dosage: 200 MD QD INTRAVENOUS; 100 MG QD INTRAVENOUS
     Route: 042
     Dates: start: 20030628, end: 20030629
  4. CEFOPERAZONE/SULBACTAM [Concomitant]
  5. FLUCONAZOLE [Concomitant]
  6. CEFAZOLIN SODIUM [Concomitant]

REACTIONS (17)
  - ANAEMIA [None]
  - AORTIC ANEURYSM RUPTURE [None]
  - AORTIC ARTERIOSCLEROSIS [None]
  - BACTERIAL PERICARDITIS [None]
  - BRAIN ABSCESS [None]
  - CIRCULATORY COLLAPSE [None]
  - COMA HEPATIC [None]
  - DIALYSIS [None]
  - HEPATIC CIRRHOSIS [None]
  - KLEBSIELLA INFECTION [None]
  - LISTERIOSIS [None]
  - MENINGITIS [None]
  - PHARYNGITIS STREPTOCOCCAL [None]
  - PLATELET COUNT DECREASED [None]
  - RENAL FAILURE [None]
  - SPLENOMEGALY [None]
  - STAPHYLOCOCCAL PHARYNGITIS [None]
